FAERS Safety Report 7207403-0 (Version None)
Quarter: 2011Q1

REPORT INFORMATION
  Report Type: 
  Country: None (occurrence: None)
  Receive Date: 20110103
  Receipt Date: 20101224
  Transmission Date: 20110831
  Serious: Yes (Life-Threatening, Hospitalization, Disabling)
  Sender: FDA-Public Use
  Company Number: FR-JNJFOC-20100300611

PATIENT
  Age: 62 Year
  Sex: Male
  Weight: 77 kg

DRUGS (24)
  1. MEDROL [Suspect]
     Route: 048
  2. MEDROL [Suspect]
     Route: 048
  3. FLAGYL [Concomitant]
     Indication: DIVERTICULUM
     Route: 048
  4. OFLOCET [Concomitant]
     Indication: DIVERTICULUM
     Route: 048
  5. REMICADE [Suspect]
     Indication: CROHN'S DISEASE
     Route: 042
  6. MEDROL [Suspect]
     Indication: CROHN'S DISEASE
     Route: 048
  7. SMECTA [Concomitant]
     Indication: DIARRHOEA
     Dosage: DOSE 3 DF DAILY
     Route: 048
  8. CYMEVAN [Concomitant]
     Indication: CYTOMEGALOVIRUS INFECTION
     Dosage: DOSE WAS 2
     Route: 042
  9. REMICADE [Suspect]
     Route: 042
  10. LANTUS [Concomitant]
     Indication: DIABETES MELLITUS
     Dosage: IN THE PM
  11. PERIKABIVEN [Concomitant]
     Indication: PARENTERAL NUTRITION
  12. CLAMOXYL [Concomitant]
     Indication: DIVERTICULUM
     Route: 048
  13. ACETAMINOPHEN [Concomitant]
  14. HUMALOG [Concomitant]
     Indication: DIABETES MELLITUS
     Route: 058
  15. SPASFON LYOC [Concomitant]
     Indication: MUSCLE SPASMS
     Route: 048
  16. REMICADE [Suspect]
     Dosage: 2ND INFUSION
     Route: 042
  17. IMUREL [Suspect]
     Indication: CROHN'S DISEASE
     Route: 042
  18. NEXIUM [Concomitant]
     Indication: ULCER
     Route: 048
  19. BACTRIM [Concomitant]
  20. INNOHEP [Concomitant]
  21. TRACITRANS [Concomitant]
  22. ACTONEL [Concomitant]
     Indication: OSTEOPOROSIS
     Route: 048
  23. CALCIUM WITH VITAMIN D [Concomitant]
     Indication: OSTEOPOROSIS
     Route: 048
  24. CERNEVIT-12 [Concomitant]

REACTIONS (10)
  - PNEUMONIA [None]
  - OEDEMA PERIPHERAL [None]
  - LYMPHOPENIA [None]
  - PULMONARY EMBOLISM [None]
  - HYPOALBUMINAEMIA [None]
  - DEEP VEIN THROMBOSIS [None]
  - RESPIRATORY FAILURE [None]
  - PNEUMOCYSTIS JIROVECI PNEUMONIA [None]
  - PNEUMOTHORAX [None]
  - GENERAL PHYSICAL HEALTH DETERIORATION [None]
